FAERS Safety Report 17346364 (Version 1)
Quarter: 2020Q1

REPORT INFORMATION
  Report Type: Report from Study
  Country: US (occurrence: US)
  Receive Date: 20200129
  Receipt Date: 20200129
  Transmission Date: 20200409
  Serious: No
  Sender: FDA-Public Use
  Company Number: US-EXELIXIS-CABO-19022715

PATIENT
  Age: 50 Year
  Sex: Male

DRUGS (1)
  1. CABOMETYX [Suspect]
     Active Substance: CABOZANTINIB S-MALATE
     Indication: HEPATIC CANCER
     Dosage: 40 MG, QD (W/O FOOD)
     Dates: start: 20190710, end: 20190905

REACTIONS (10)
  - Dyspnoea [Unknown]
  - Somnolence [Unknown]
  - Blood pressure increased [Recovered/Resolved]
  - Asthenia [Not Recovered/Not Resolved]
  - Fatigue [Unknown]
  - Decreased appetite [Recovering/Resolving]
  - Burning sensation [Not Recovered/Not Resolved]
  - Taste disorder [Unknown]
  - Pharyngeal swelling [Unknown]
  - Vomiting [Recovered/Resolved]

NARRATIVE: CASE EVENT DATE: 201907
